FAERS Safety Report 16356474 (Version 1)
Quarter: 2019Q2

REPORT INFORMATION
  Report Type: Spontaneous
  Country: CA (occurrence: CA)
  Receive Date: 20190527
  Receipt Date: 20190527
  Transmission Date: 20190711
  Serious: Yes (Congenital Anomaly, Other)
  Sender: FDA-Public Use
  Company Number: CA-APOTEX-2018AP025334

PATIENT
  Sex: Male

DRUGS (1)
  1. PAXIL [Suspect]
     Active Substance: PAROXETINE HYDROCHLORIDE
     Indication: PRODUCT USED FOR UNKNOWN INDICATION
     Dosage: UNK
     Route: 064

REACTIONS (25)
  - Head deformity [Unknown]
  - Foot deformity [Unknown]
  - Muscle contracture [Unknown]
  - Congenital brain damage [Unknown]
  - Deafness [Unknown]
  - Hand deformity [Unknown]
  - Plagiocephaly [Unknown]
  - Autism spectrum disorder [Unknown]
  - Dilatation ventricular [Unknown]
  - Psychomotor hyperactivity [Unknown]
  - Developmental delay [Unknown]
  - Congenital hand malformation [Unknown]
  - Attention deficit/hyperactivity disorder [Unknown]
  - Foetal exposure during pregnancy [Unknown]
  - Congenital oculomotor apraxia [Unknown]
  - Joint dislocation [Unknown]
  - Hirsutism [Unknown]
  - Neurodegenerative disorder [Unknown]
  - Arthropathy [Unknown]
  - Wrist deformity [Unknown]
  - Cerebral atrophy [Unknown]
  - Colloid brain cyst [Unknown]
  - Encephalopathy [Unknown]
  - Dysmorphism [Unknown]
  - Ill-defined disorder [Unknown]
